FAERS Safety Report 7003920-7 (Version None)
Quarter: 2010Q3

REPORT INFORMATION
  Report Type: 
  Country: None (occurrence: None)
  Receive Date: 20100920
  Receipt Date: 20091217
  Transmission Date: 20110219
  Serious: Yes (Hospitalization)
  Sender: FDA-Public Use
  Company Number: US-WYE-H12695309

PATIENT
  Sex: Male
  Weight: 70.37 kg

DRUGS (7)
  1. PROTONIX [Suspect]
     Indication: BARRETT'S OESOPHAGUS
     Route: 048
     Dates: start: 20080101
  2. PRAVASTATIN [Concomitant]
     Dates: end: 20091211
  3. PRAVASTATIN [Concomitant]
     Dates: start: 20091212
  4. ERGOCALCIFEROL [Concomitant]
  5. CYANOCOBALAMIN [Concomitant]
  6. SUCRALFATE [Concomitant]
     Dosage: UNKNOWN
     Dates: start: 20080101
  7. LORAZEPAM [Concomitant]
     Indication: ANXIETY
     Dosage: DAILY AS NEEDED

REACTIONS (3)
  - CHEST PAIN [None]
  - HYPOAESTHESIA [None]
  - HYPOAESTHESIA FACIAL [None]
